FAERS Safety Report 5155274-9 (Version None)
Quarter: 2006Q4

REPORT INFORMATION
  Report Type: 
  Country: None (occurrence: None)
  Receive Date: 20061121
  Receipt Date: 20061109
  Transmission Date: 20070319
  Serious: Yes (Other)
  Sender: FDA-Public Use
  Company Number: PHBS2006BR17527

PATIENT
  Sex: Female

DRUGS (3)
  1. METHERGINE [Suspect]
     Indication: POST ABORTION HAEMORRHAGE
     Dosage: 0.125 MG, Q8H
     Route: 048
     Dates: start: 20061103
  2. FERROUS SULFATE TAB [Concomitant]
     Indication: ANAEMIA
     Dosage: UNK, BID
     Route: 048
  3. KEFORAL [Concomitant]
     Dosage: UNK, Q6H
     Route: 048

REACTIONS (1)
  - HAEMORRHAGE [None]
